FAERS Safety Report 9228754 (Version 3)
Quarter: 2013Q3

REPORT INFORMATION
  Report Type: Spontaneous
  Country: US (occurrence: US)
  Receive Date: 20130412
  Receipt Date: 20130718
  Transmission Date: 20140515
  Serious: Yes (Other)
  Sender: FDA-Public Use
  Company Number: US-PFIZER INC-2013116084

PATIENT
  Age: 37 Year
  Sex: Female
  Weight: 95.69 kg

DRUGS (6)
  1. NEURONTIN [Suspect]
     Indication: LORDOSIS
     Dosage: 600 MG, 3X/DAY
     Dates: start: 201010, end: 20130131
  2. NEURONTIN [Suspect]
     Indication: SCOLIOSIS
     Dosage: UNK
  3. NEURONTIN [Suspect]
     Indication: BACK PAIN
  4. NEXIUM [Concomitant]
     Dosage: 40 MG, 3X/DAY
  5. FIORICET [Concomitant]
     Dosage: 700 MG, EVERY 4 HRS
  6. LORTAB [Concomitant]
     Dosage: 10/500 MG, 2X/DAY

REACTIONS (3)
  - Off label use [Unknown]
  - Pain [Unknown]
  - Drug ineffective [Unknown]
